FAERS Safety Report 19051712 (Version 1)
Quarter: 2021Q1

REPORT INFORMATION
  Report Type: Spontaneous
  Country: US (occurrence: US)
  Receive Date: 20210324
  Receipt Date: 20210324
  Transmission Date: 20210420
  Serious: No
  Sender: FDA-Public Use
  Company Number: US-ASTRAZENECA-2021A111904

PATIENT
  Sex: Male

DRUGS (2)
  1. LOKELMA [Suspect]
     Active Substance: SODIUM ZIRCONIUM CYCLOSILICATE
     Indication: HYPERKALAEMIA
     Dosage: 5.0G UNKNOWN
     Route: 048
     Dates: start: 20201223, end: 20210302
  2. LOKELMA [Suspect]
     Active Substance: SODIUM ZIRCONIUM CYCLOSILICATE
     Indication: HYPERKALAEMIA
     Dosage: 10.0G UNKNOWN
     Route: 048

REACTIONS (4)
  - Constipation [Unknown]
  - Malaise [Unknown]
  - Oedema [Recovered/Resolved]
  - Abdominal distension [Recovered/Resolved]
